FAERS Safety Report 4743994-7 (Version None)
Quarter: 2005Q3

REPORT INFORMATION
  Report Type: 
  Country: None (occurrence: None)
  Receive Date: 20050801
  Receipt Date: 20041110
  Transmission Date: 20060218
  Serious: Yes (Hospitalization)
  Sender: FDA-Public Use
  Company Number: 210340

PATIENT
  Sex: Male

DRUGS (3)
  1. RITUXAN [Suspect]
     Indication: LYMPHOMA
     Dosage: 375 MG/M2, INTRAVENOUS
     Route: 042
     Dates: start: 20041104, end: 20041104
  2. TYLENOL [Concomitant]
  3. BENADRYL [Concomitant]

REACTIONS (3)
  - CHILLS [None]
  - HYPOXIA [None]
  - PYREXIA [None]
